FAERS Safety Report 5032734-2 (Version None)
Quarter: 2006Q2

REPORT INFORMATION
  Report Type: 
  Country: None (occurrence: None)
  Receive Date: 20060620
  Receipt Date: 20060620
  Transmission Date: 20061013
  Serious: No
  Sender: FDA-Public Use
  Company Number: None

PATIENT
  Sex: Female
  Weight: 79.3795 kg

DRUGS (2)
  1. MICROGESTIN FE 1.5/30 [Suspect]
     Dosage: 1.5 DAILY ORAL
     Route: 048
     Dates: start: 20050215
  2. MICROGESTIN FE 1.5/30 [Suspect]
     Dosage: 1.5 DAILY ORAL
     Route: 048
     Dates: start: 20060521

REACTIONS (3)
  - ALOPECIA [None]
  - DEPRESSION [None]
  - THERAPEUTIC RESPONSE UNEXPECTED WITH DRUG SUBSTITUTION [None]
